FAERS Safety Report 11054368 (Version 2)
Quarter: 2015Q2

REPORT INFORMATION
  Report Type: Spontaneous
  Country: US (occurrence: None)
  Receive Date: 20150420
  Receipt Date: 20150511
  Transmission Date: 20150821
  Serious: Yes (Other)
  Sender: FDA-Public Use
  Company Number: 2015AKN00218

PATIENT
  Age: 31 Year
  Sex: Male
  Weight: 81.6 kg

DRUGS (1)
  1. MYORISAN [Suspect]
     Active Substance: ISOTRETINOIN
     Indication: ACNE
     Dates: start: 2015, end: 2015

REACTIONS (2)
  - Loss of libido [None]
  - Testicular atrophy [None]

NARRATIVE: CASE EVENT DATE: 2015
